FAERS Safety Report 12602091 (Version 1)
Quarter: 2016Q3

REPORT INFORMATION
  Report Type: Spontaneous
  Country: US (occurrence: US)
  Receive Date: 20160728
  Receipt Date: 20160728
  Transmission Date: 20161109
  Serious: No
  Sender: FDA-Public Use
  Company Number: US-PFIZER INC-2016329600

PATIENT
  Age: 68 Year
  Sex: Female

DRUGS (4)
  1. LOSARTAN. [Suspect]
     Active Substance: LOSARTAN
     Dosage: UNK
  2. METOPROLOL TARTRATE. [Suspect]
     Active Substance: METOPROLOL TARTRATE
     Dosage: UNK
  3. IRBESARTAN. [Suspect]
     Active Substance: IRBESARTAN
     Dosage: UNK
  4. SULINDAC. [Suspect]
     Active Substance: SULINDAC
     Dosage: UNK

REACTIONS (1)
  - Drug hypersensitivity [Unknown]
